FAERS Safety Report 15953963 (Version 1)
Quarter: 2019Q1

REPORT INFORMATION
  Report Type: Spontaneous
  Country: FR (occurrence: FR)
  Receive Date: 20190212
  Receipt Date: 20190212
  Transmission Date: 20190417
  Serious: Yes (Congenital Anomaly, Other)
  Sender: FDA-Public Use
  Company Number: FR-MYLANLABS-2019M1012078

PATIENT
  Sex: Female
  Weight: 1.9 kg

DRUGS (1)
  1. CLARITHROMYCIN. [Suspect]
     Active Substance: CLARITHROMYCIN
     Indication: INFECTION
     Dosage: 750 MILLIGRAM, QD
     Route: 064
     Dates: start: 20140327, end: 20140401

REACTIONS (3)
  - Foetal exposure during pregnancy [Recovered/Resolved]
  - Foetal malnutrition [Recovering/Resolving]
  - Gastroschisis [Recovered/Resolved]

NARRATIVE: CASE EVENT DATE: 20140701
